FAERS Safety Report 4728087-7 (Version None)
Quarter: 2005Q3

REPORT INFORMATION
  Report Type: 
  Country: None (occurrence: None)
  Receive Date: 20050729
  Receipt Date: 20050721
  Transmission Date: 20060218
  Serious: Yes (Other)
  Sender: FDA-Public Use
  Company Number: PHNR2005AU01166

PATIENT
  Age: 37 Year
  Sex: Male

DRUGS (3)
  1. CLOZARIL [Suspect]
     Indication: PSYCHOTIC DISORDER
     Dosage: 0 - 300 MG/DAY
     Dates: start: 20050624
  2. ARIPIPRAZOLE [Concomitant]
  3. VENLAFAXINE HCL [Concomitant]

REACTIONS (7)
  - BLOOD PRESSURE FLUCTUATION [None]
  - CHEST PAIN [None]
  - DYSARTHRIA [None]
  - ELECTROCARDIOGRAM ABNORMAL [None]
  - ELECTROCARDIOGRAM QRS COMPLEX ABNORMAL [None]
  - ELECTROCARDIOGRAM T WAVE AMPLITUDE DECREASED [None]
  - TROPONIN I INCREASED [None]
